FAERS Safety Report 5073773-5 (Version None)
Quarter: 2006Q3

REPORT INFORMATION
  Report Type: 
  Country: None (occurrence: None)
  Receive Date: 20060717
  Receipt Date: 20060124
  Transmission Date: 20061208
  Serious: No
  Sender: FDA-Public Use
  Company Number: 2006000214

PATIENT
  Age: 69 Year
  Sex: Female

DRUGS (8)
  1. TARCEVA [Suspect]
     Indication: NON-SMALL CELL LUNG CANCER
     Dosage: SEE IMAGE
     Route: 048
     Dates: start: 20051029
  2. TARCEVA [Suspect]
     Indication: NON-SMALL CELL LUNG CANCER
     Dosage: SEE IMAGE
     Route: 048
     Dates: start: 20051121
  3. TARCEVA [Suspect]
     Indication: NON-SMALL CELL LUNG CANCER
     Dosage: SEE IMAGE
     Route: 048
     Dates: start: 20051201
  4. GLYBURIDE [Concomitant]
  5. DIOVAN [Concomitant]
  6. PAXIL [Concomitant]
  7. PREVACID [Concomitant]
  8. HYDROCODONE (HYDROCODONE) [Concomitant]

REACTIONS (3)
  - FATIGUE [None]
  - UTERINE HAEMORRHAGE [None]
  - WEIGHT DECREASED [None]
